FAERS Safety Report 20723876 (Version 1)
Quarter: 2022Q2

REPORT INFORMATION
  Report Type: Spontaneous
  Country: US (occurrence: None)
  Receive Date: 20220418
  Receipt Date: 20220418
  Transmission Date: 20220721
  Serious: Yes (Hospitalization)
  Sender: FDA-Public Use
  Company Number: None

PATIENT
  Sex: Male

DRUGS (1)
  1. HUMIRA [Suspect]
     Active Substance: ADALIMUMAB
     Indication: Colitis ulcerative
     Dosage: 40/0.4 MG/ML?INJECT 1 PEN UNDER THE SKIN (SUBCUTANEOUS INJECTION) EVERY 2 WEEKS?
     Route: 058
     Dates: start: 20220127

REACTIONS (1)
  - Hospitalisation [None]
